FAERS Safety Report 12407325 (Version 1)
Quarter: 2016Q2

REPORT INFORMATION
  Report Type: Spontaneous
  Country: US (occurrence: US)
  Receive Date: 20160526
  Receipt Date: 20160526
  Transmission Date: 20160815
  Serious: Yes (Hospitalization)
  Sender: FDA-Public Use
  Company Number: US-PFIZER INC-2016218457

PATIENT
  Age: 64 Year
  Sex: Male
  Weight: 79 kg

DRUGS (10)
  1. PENTAM 300 [Concomitant]
     Active Substance: PENTAMIDINE ISETHIONATE
     Dosage: 300 MG, UNK
     Route: 055
  2. ACYCLOVIR /00587301/ [Concomitant]
     Active Substance: ACYCLOVIR
     Dosage: 400 MG, UNK (Q12HR)
     Route: 048
  3. VANCOMYCIN [Concomitant]
     Active Substance: VANCOMYCIN
     Dosage: 1.25 G, UNK (166.67 ML/HR IVPB Q8HR)
     Route: 051
  4. FLAGYL [Concomitant]
     Active Substance: METRONIDAZOLE\METRONIDAZOLE HYDROCHLORIDE
     Dosage: 500 MG, UNK (100ML/HR IVPB Q8H)
     Route: 051
  5. PROTONIX [Concomitant]
     Active Substance: PANTOPRAZOLE SODIUM
     Dosage: 40 MG, 1X/DAY
     Route: 048
  6. MAGNESIUM SULFATE. [Concomitant]
     Active Substance: MAGNESIUM SULFATE
     Indication: ELECTROLYTE IMBALANCE
     Dosage: UNK (2GM 50 ML/HER IVPB AS DIRECTED)
     Route: 051
  7. CALCIUM GLUCONATE. [Concomitant]
     Active Substance: CALCIUM GLUCONATE
     Indication: ELECTROLYTE IMBALANCE
     Dosage: UNK (CALCIUM GLUCONATE IV + SODIUM CHLORIDE 0.9% 50 ML 1 GM ML/HR )
     Route: 051
  8. VFEND [Suspect]
     Active Substance: VORICONAZOLE
     Dosage: 200 MG, 2X/DAY
     Route: 048
  9. MAXIPIME [Concomitant]
     Active Substance: CEFEPIME HYDROCHLORIDE
     Dosage: 2 G, UNK (100ML/HR IVPB Q8HR)
     Route: 051
  10. SODIUM CHLORIDE. [Concomitant]
     Active Substance: SODIUM CHLORIDE
     Dosage: UNK (0.9% 1000 ML 100ML/HR)
     Route: 042

REACTIONS (2)
  - Platelet count decreased [Unknown]
  - White blood cell count decreased [Unknown]
